FAERS Safety Report 10767106 (Version 1)
Quarter: 2015Q1

REPORT INFORMATION
  Report Type: Spontaneous
  Country: GB (occurrence: GB)
  Receive Date: 20150205
  Receipt Date: 20150205
  Transmission Date: 20150721
  Serious: Yes (Other)
  Sender: FDA-Public Use
  Company Number: GB-TEVA-537258ISR

PATIENT
  Age: 38 Year
  Sex: Female
  Weight: 60.77 kg

DRUGS (6)
  1. STARFLOWER OIL [Concomitant]
  2. SPATONE [Concomitant]
  3. PRIMROSE [Concomitant]
  4. FLUCONAZOLE. [Suspect]
     Active Substance: FLUCONAZOLE
     Indication: CANDIDA INFECTION
     Route: 048
  5. NAPROXEN. [Concomitant]
     Active Substance: NAPROXEN
  6. VITAMIN D [Concomitant]
     Active Substance: CHOLECALCIFEROL

REACTIONS (10)
  - Oral candidiasis [Recovered/Resolved]
  - Genital pain [Recovered/Resolved]
  - Pharyngeal oedema [Recovered/Resolved]
  - Swollen tongue [Recovered/Resolved]
  - Vulvovaginal swelling [Recovered/Resolved]
  - Vulval ulceration [Recovered/Resolved]
  - Oropharyngeal pain [Recovered/Resolved]
  - Vulvovaginal erythema [Recovered/Resolved]
  - Gingival ulceration [Recovered/Resolved]
  - Pruritus genital [Recovered/Resolved]

NARRATIVE: CASE EVENT DATE: 20150106
